FAERS Safety Report 25197126 (Version 3)
Quarter: 2025Q2

REPORT INFORMATION
  Report Type: Report from Study
  Country: DE (occurrence: DE)
  Receive Date: 20250415
  Receipt Date: 20250530
  Transmission Date: 20250717
  Serious: Yes (Hospitalization, Other)
  Sender: JOHNSON AND JOHNSON
  Company Number: DE-JNJFOC-20250161406

PATIENT
  Age: 54 Year
  Sex: Female
  Weight: 90 kg

DRUGS (22)
  1. TREMFYA [Suspect]
     Active Substance: GUSELKUMAB
     Indication: Psoriasis
     Dates: start: 20221013
  2. TREMFYA [Suspect]
     Active Substance: GUSELKUMAB
  3. TREMFYA [Suspect]
     Active Substance: GUSELKUMAB
  4. COSENTYX [Suspect]
     Active Substance: SECUKINUMAB
     Indication: Psoriasis
     Dosage: 300 MG, Q4W
     Dates: start: 20210222, end: 20221012
  5. COSENTYX [Suspect]
     Active Substance: SECUKINUMAB
     Dosage: 300 MG, QMO
  6. METHOTREXATE [Suspect]
     Active Substance: METHOTREXATE
     Indication: Product used for unknown indication
     Route: 065
     Dates: start: 201910, end: 202002
  7. IVABRADINE [Suspect]
     Active Substance: IVABRADINE
     Indication: Product used for unknown indication
     Route: 065
  8. ACITRETIN [Suspect]
     Active Substance: ACITRETIN
     Indication: Product used for unknown indication
     Route: 065
  9. ACITRETIN [Suspect]
     Active Substance: ACITRETIN
     Route: 065
  10. ACITRETIN [Suspect]
     Active Substance: ACITRETIN
     Route: 065
  11. ACITRETIN [Suspect]
     Active Substance: ACITRETIN
     Route: 065
  12. ACITRETIN [Suspect]
     Active Substance: ACITRETIN
     Route: 065
  13. ASPIRIN [Concomitant]
     Active Substance: ASPIRIN
     Indication: Product used for unknown indication
     Dosage: UNK, QD
     Route: 065
  14. ATORVASTATIN [Concomitant]
     Active Substance: ATORVASTATIN
     Indication: Product used for unknown indication
     Dosage: UNK, QD
     Route: 065
  15. FLECAINIDE ACETATE [Concomitant]
     Active Substance: FLECAINIDE ACETATE
     Indication: Product used for unknown indication
     Dosage: UNK, BID (1-0-1-0)
     Route: 065
  16. FLECAINIDE ACETATE [Concomitant]
     Active Substance: FLECAINIDE ACETATE
     Dosage: UNK, BID (1-0-1-0)
     Route: 065
  17. FLECAINIDE ACETATE [Concomitant]
     Active Substance: FLECAINIDE ACETATE
     Dosage: UNK, BID (1-0-1-0)
     Route: 065
  18. FLECAINIDE ACETATE [Concomitant]
     Active Substance: FLECAINIDE ACETATE
     Dosage: UNK, BID (1-0-1-0)
     Route: 065
  19. FLECAINIDE ACETATE [Concomitant]
     Active Substance: FLECAINIDE ACETATE
     Dosage: UNK, BID (1-0-1-0)
     Route: 065
  20. METOPROLOL SUCCINATE [Concomitant]
     Active Substance: METOPROLOL SUCCINATE
     Indication: Product used for unknown indication
     Dosage: UNK, BID (1?2-0-1?2-0)
     Route: 065
  21. RAMIPRIL [Concomitant]
     Active Substance: RAMIPRIL
     Indication: Product used for unknown indication
     Dates: start: 202203
  22. PANTOPRAZOLE SODIUM [Concomitant]
     Active Substance: PANTOPRAZOLE SODIUM
     Indication: Product used for unknown indication
     Dosage: UNK, QD (1-0-0-0)
     Route: 065

REACTIONS (11)
  - Hypertensive crisis [Unknown]
  - Acute myocardial infarction [Recovered/Resolved]
  - Acute myocardial infarction [Recovered/Resolved]
  - Hypertension [Unknown]
  - Dizziness [Unknown]
  - Headache [Unknown]
  - Coronary artery disease [Unknown]
  - Staphylococcal infection [Recovered/Resolved]
  - Oral candidiasis [Recovered/Resolved]
  - Visual impairment [Unknown]
  - Transaminases increased [Unknown]

NARRATIVE: CASE EVENT DATE: 20220301
